FAERS Safety Report 12392301 (Version 2)
Quarter: 2016Q2

REPORT INFORMATION
  Report Type: Spontaneous
  Country: US (occurrence: US)
  Receive Date: 20160523
  Receipt Date: 20160629
  Transmission Date: 20160815
  Serious: Yes (Other)
  Sender: FDA-Public Use
  Company Number: US-BRISTOL-MYERS SQUIBB COMPANY-BMS-2016-038836

PATIENT
  Sex: Female
  Weight: 79 kg

DRUGS (1)
  1. ELIQUIS [Suspect]
     Active Substance: APIXABAN
     Indication: PULMONARY HYPERTENSION
     Dosage: 2.5 MG, BID
     Route: 065
     Dates: start: 20160330

REACTIONS (6)
  - Oedema [Not Recovered/Not Resolved]
  - Cardiac arrest [Unknown]
  - Cheilitis [Unknown]
  - Body height decreased [Unknown]
  - Off label use [Unknown]
  - Product quality issue [Unknown]
